FAERS Safety Report 11312026 (Version 2)
Quarter: 2015Q3

REPORT INFORMATION
  Report Type: Spontaneous
  Country: US (occurrence: None)
  Receive Date: 20150723
  Receipt Date: 20150727
  Transmission Date: 20151125
  Serious: Yes (Other)
  Sender: FDA-Public Use
  Company Number: US-002119

PATIENT
  Age: 62 Year
  Sex: Female

DRUGS (2)
  1. PARATHYROID HORMONE [Suspect]
     Active Substance: PARATHYROID HORMONE
     Indication: HYPOPARATHYROIDISM
     Route: 058
     Dates: start: 20150615
  2. CALCIUM [Concomitant]
     Active Substance: CALCIUM

REACTIONS (7)
  - Therapy cessation [None]
  - Post procedural complication [None]
  - Nausea [None]
  - Cough [None]
  - Throat irritation [None]
  - Headache [None]
  - Blood calcium increased [None]

NARRATIVE: CASE EVENT DATE: 2015
